FAERS Safety Report 8119497 (Version 4)
Quarter: 2013Q4

REPORT INFORMATION
  Report Type: Spontaneous
  Country: US (occurrence: US)
  Receive Date: 20110902
  Receipt Date: 20131203
  Transmission Date: 20140711
  Serious: Yes (Hospitalization)
  Sender: FDA-Public Use
  Company Number: US-BAYER-2011-080472

PATIENT
  Age: 28 Year
  Sex: Female
  Weight: 99.77 kg

DRUGS (10)
  1. YASMIN [Suspect]
     Indication: PREMENSTRUAL SYNDROME
     Dosage: UNK
     Dates: start: 2001, end: 2008
  2. DEPAKOTE [Concomitant]
     Dosage: UNK
     Dates: start: 20040511, end: 20060104
  3. ZONEGRAN [Concomitant]
     Dosage: UNK
     Dates: start: 20040511, end: 20060104
  4. ZOMIG [Concomitant]
     Dosage: UNK
     Dates: start: 20040511, end: 20060104
  5. ACCOLATE [Concomitant]
     Dosage: UNK
     Dates: start: 20040511, end: 20060104
  6. KLONOPIN [Concomitant]
     Dosage: 2 MG, Q HS
     Route: 048
     Dates: start: 20040914, end: 20060522
  7. TRAZODONE [Concomitant]
     Dosage: 50 TO 150 MG Q HS
     Route: 048
     Dates: start: 20040914, end: 20060522
  8. CELEBREX [Concomitant]
     Dosage: 200 MG Q DAY
     Route: 048
     Dates: start: 20050111, end: 20050816
  9. AXERT [Concomitant]
     Dosage: UNK
     Dates: start: 20050412, end: 20060522
  10. LEXAPRO [Concomitant]
     Dosage: 10 TO 20 MG Q AM
     Route: 048
     Dates: start: 20050412, end: 20060522

REACTIONS (4)
  - Deep vein thrombosis [None]
  - Fear [None]
  - Injury [None]
  - Pain [None]
